FAERS Safety Report 5594124-3 (Version None)
Quarter: 2008Q1

REPORT INFORMATION
  Report Type: 
  Country: None (occurrence: None)
  Receive Date: 20080115
  Receipt Date: 20080104
  Transmission Date: 20080703
  Serious: Yes (Other)
  Sender: FDA-Public Use
  Company Number: DSA_81741_2006

PATIENT
  Sex: Male
  Weight: 58.0604 kg

DRUGS (4)
  1. XYREM [Suspect]
     Indication: SLEEP DISORDER
     Dosage: 3 GM (3 GM,1 IN 1 D), ORAL; 6 GM (3 GM,2 IN 1 D), ORAL; 3 GM (1.5 GM,2 IN 1 D)
     Route: 048
     Dates: start: 20060801, end: 20060101
  2. XYREM [Suspect]
     Indication: SLEEP DISORDER
     Dosage: 3 GM (3 GM,1 IN 1 D), ORAL; 6 GM (3 GM,2 IN 1 D), ORAL; 3 GM (1.5 GM,2 IN 1 D)
     Route: 048
     Dates: start: 20060101, end: 20061024
  3. XYREM [Suspect]
     Indication: SLEEP DISORDER
     Dosage: 3 GM (3 GM,1 IN 1 D), ORAL; 6 GM (3 GM,2 IN 1 D), ORAL; 3 GM (1.5 GM,2 IN 1 D)
     Route: 048
     Dates: start: 20061025
  4. AMPHETAMINE (AMFETAMINE SULFATE) [Concomitant]

REACTIONS (9)
  - DIZZINESS [None]
  - GAIT DISTURBANCE [None]
  - HYPERREFLEXIA [None]
  - HYPOAESTHESIA [None]
  - HYPOKALAEMIA [None]
  - MENTAL IMPAIRMENT [None]
  - PARALYSIS [None]
  - SENSORY DISTURBANCE [None]
  - VISION BLURRED [None]
